FAERS Safety Report 4853709-X (Version None)
Quarter: 2005Q4

REPORT INFORMATION
  Report Type: 
  Country: None (occurrence: None)
  Receive Date: 20051212
  Receipt Date: 20051201
  Transmission Date: 20060501
  Serious: Yes (Disabling, Other)
  Sender: FDA-Public Use
  Company Number: DE_050616197

PATIENT
  Age: 53 Year
  Sex: Female
  Weight: 69 kg

DRUGS (6)
  1. GEMZAR [Suspect]
     Indication: TRANSITIONAL CELL CARCINOMA
     Dosage: 1000 MG/M2,   INTRAVENOUS;   INTRAVENOUS
     Route: 042
     Dates: start: 20050101, end: 20050501
  2. GEMZAR [Suspect]
     Indication: TRANSITIONAL CELL CARCINOMA
     Dosage: 1000 MG/M2,   INTRAVENOUS;   INTRAVENOUS
     Route: 042
     Dates: start: 20051001
  3. CARBOPLATINE TEVA (CARBOPLATIN) [Concomitant]
  4. MORPHINE [Concomitant]
  5. DURAGESIC-100 [Concomitant]
  6. ERYTHROPOIETIN (ERYTHROPOIETIN) [Concomitant]

REACTIONS (10)
  - ANAEMIA [None]
  - ATRIAL SEPTAL DEFECT [None]
  - BENIGN INTRACRANIAL HYPERTENSION [None]
  - DRUG INTERACTION [None]
  - EYE HAEMORRHAGE [None]
  - HEMIANOPIA [None]
  - MALIGNANT NEOPLASM PROGRESSION [None]
  - PANCYTOPENIA [None]
  - PAPILLOEDEMA [None]
  - THROMBOSIS [None]
